FAERS Safety Report 9039996 (Version 1)
Quarter: 2013Q1

REPORT INFORMATION
  Report Type: Spontaneous
  Country: IN (occurrence: IN)
  Receive Date: 20130130
  Receipt Date: 20130130
  Transmission Date: 20140127
  Serious: Yes (Death, Hospitalization)
  Sender: FDA-Public Use
  Company Number: PHHY2013IN008291

PATIENT
  Age: 70 Year
  Sex: Male

DRUGS (1)
  1. DIOVAN [Suspect]
     Indication: HYPERTENSION
     Dosage: 80 MG, PER DAY
     Route: 048

REACTIONS (3)
  - Cardiac failure [Fatal]
  - General physical health deterioration [Fatal]
  - Blood pressure fluctuation [Unknown]
